FAERS Safety Report 18326526 (Version 1)
Quarter: 2020Q3

REPORT INFORMATION
  Report Type: Spontaneous
  Country: IN (occurrence: IN)
  Receive Date: 20200930
  Receipt Date: 20200930
  Transmission Date: 20201103
  Serious: Yes (Other)
  Sender: FDA-Public Use
  Company Number: IN-SUN PHARMACEUTICAL INDUSTRIES LTD-2019R1-223915

PATIENT
  Age: 28 Year
  Sex: Male

DRUGS (5)
  1. FUROSEMIDE. [Suspect]
     Active Substance: FUROSEMIDE
     Indication: MITRAL VALVE STENOSIS
     Dosage: 20 MILLIGRAM, 12 HRS
     Route: 065
  2. TORASEMIDE [Interacting]
     Active Substance: TORSEMIDE
     Indication: MITRAL VALVE STENOSIS
     Dosage: 20 MILLIGRAM, 12 HRS.
     Route: 065
  3. ASPIRIN. [Interacting]
     Active Substance: ASPIRIN
     Indication: RHEUMATIC HEART DISEASE
     Dosage: 325 MILLIGRAM  TABLET, TID
     Route: 065
  4. TORASEMIDE [Interacting]
     Active Substance: TORSEMIDE
     Dosage: 10 MILLIGRAM, 24 HRS.
     Route: 065
  5. METOPROLOL SUCCINATE. [Concomitant]
     Active Substance: METOPROLOL SUCCINATE
     Indication: MITRAL VALVE STENOSIS
     Dosage: 25 MILLIGRAM, 12 HRS.
     Route: 065

REACTIONS (1)
  - Gout [Recovered/Resolved]
